FAERS Safety Report 8504371-6 (Version None)
Quarter: 2012Q3

REPORT INFORMATION
  Report Type: 
  Country: None (occurrence: None)
  Receive Date: 20120711
  Receipt Date: 20120625
  Transmission Date: 20120928
  Serious: No
  Sender: FDA-Public Use
  Company Number: US-ASTRAZENECA-2012SE42866

PATIENT
  Age: 714 Month
  Sex: Male
  Weight: 74.4 kg

DRUGS (1)
  1. SYMBICORT [Suspect]
     Indication: RESPIRATORY DISORDER
     Dosage: 80/4.5 MCG, 2 PUFFS, BID
     Route: 055
     Dates: start: 20111201

REACTIONS (5)
  - COUGH [None]
  - VISION BLURRED [None]
  - INCREASED UPPER AIRWAY SECRETION [None]
  - PNEUMONIA ASPIRATION [None]
  - OFF LABEL USE [None]
